FAERS Safety Report 9336971 (Version 3)
Quarter: 2013Q3

REPORT INFORMATION
  Report Type: Spontaneous
  Country: JP (occurrence: JP)
  Receive Date: 20130607
  Receipt Date: 20130709
  Transmission Date: 20140515
  Serious: Yes (Hospitalization)
  Sender: FDA-Public Use
  Company Number: JP-OTSUKA-JP-2013-12098

PATIENT
  Age: 87 Year
  Sex: Female

DRUGS (26)
  1. SAMSCA [Suspect]
     Indication: CARDIAC FAILURE
     Dosage: 7.5 MG MILLIGRAM(S), QD
     Route: 048
     Dates: start: 20130209, end: 20130215
  2. SAMSCA [Suspect]
     Indication: PLEURAL EFFUSION
  3. BAYASPIRIN [Concomitant]
     Indication: ANGINA PECTORIS
     Dosage: 100 MG MILLIGRAM(S), QD
     Route: 048
     Dates: start: 20130208, end: 20130220
  4. PLAVIX [Concomitant]
     Indication: ANGINA PECTORIS
     Dosage: 75 MG MILLIGRAM(S), QD
     Route: 048
     Dates: start: 20130208, end: 20130220
  5. NEXIUM [Concomitant]
     Indication: PROPHYLAXIS AGAINST GASTROINTESTINAL ULCER
     Dosage: 10 MG MILLIGRAM(S), QD
     Route: 048
     Dates: start: 20130208, end: 20130220
  6. SIGMART [Concomitant]
     Indication: ANGINA PECTORIS
     Dosage: 15 MG MILLIGRAM(S), TID
     Route: 048
     Dates: start: 20130208, end: 20130220
  7. BASEN [Concomitant]
     Indication: DIABETES MELLITUS
     Dosage: 0.6 MG MILLIGRAM(S), TID
     Route: 048
     Dates: start: 20130208, end: 20130220
  8. HANP [Concomitant]
     Indication: CARDIAC FAILURE
     Dosage: 1000 MCG, BID
     Route: 042
     Dates: start: 20130208, end: 20130209
  9. HANP [Concomitant]
     Indication: PLEURAL EFFUSION
  10. KCL [Concomitant]
     Indication: ELECTROLYTE SUBSTITUTION THERAPY
     Dosage: 20 MEQ, QD
     Route: 042
     Dates: start: 20130208
  11. MYSLEE [Concomitant]
     Indication: INSOMNIA
     Dosage: 5 MG MILLIGRAM(S), QD
     Route: 048
     Dates: start: 20130208
  12. NITROPEN [Concomitant]
     Indication: CHEST PAIN
     Dosage: 0.3 MG MILLIGRAM(S), QD
     Route: 048
     Dates: start: 20130208
  13. HEPARIN [Concomitant]
     Indication: CARDIAC FAILURE
     Dosage: 5 KIU IU(1000S), BID
     Route: 042
     Dates: start: 20130209, end: 20130215
  14. HEPARIN [Concomitant]
     Indication: RESPIRATORY FAILURE
  15. LASIX [Concomitant]
     Indication: CARDIAC FAILURE
     Dosage: 20 MG MILLIGRAM(S), BID
     Route: 042
     Dates: start: 20130209, end: 20130210
  16. LASIX [Concomitant]
     Indication: PLEURAL EFFUSION
     Dosage: 20 MG MILLIGRAM(S), QD
     Route: 042
     Dates: start: 20130211, end: 20130211
  17. LASIX [Concomitant]
     Dosage: 20 MG MILLIGRAM(S), BID
     Route: 042
     Dates: start: 20130212, end: 20130217
  18. LASIX [Concomitant]
     Dosage: 20 MG MILLIGRAM(S), QD
     Route: 042
     Dates: start: 20130218, end: 20130220
  19. ASPARA K [Concomitant]
     Indication: ELECTROLYTE SUBSTITUTION THERAPY
     Dosage: 900 MG MILLIGRAM(S), TID
     Route: 048
     Dates: start: 20130209, end: 20130220
  20. ALDACTONE A [Concomitant]
     Indication: CARDIAC FAILURE
     Dosage: 20 MG MILLIGRAM(S), QD
     Route: 048
     Dates: start: 20130211, end: 20130220
  21. MAINTATE [Concomitant]
     Indication: CARDIAC FAILURE
     Dosage: 0.675 MG MILLIGRAM(S), QD
     Route: 048
     Dates: start: 20130211, end: 20130220
  22. EQUA [Concomitant]
     Indication: DIABETES MELLITUS
     Dosage: 100 MG MILLIGRAM(S), BID
     Route: 048
     Dates: start: 20130211, end: 20130220
  23. LASIX [Concomitant]
     Indication: CARDIAC FAILURE
     Dosage: 20 MG MILLIGRAM(S), QD
     Route: 048
     Dates: start: 20130211, end: 20130211
  24. LASIX [Concomitant]
     Dosage: 20 MG MILLIGRAM(S), BID
     Route: 048
     Dates: start: 20130212, end: 20130215
  25. LASIX [Concomitant]
     Dosage: 20 MG MILLIGRAM(S), TID
     Route: 048
     Dates: start: 20130216, end: 20130220
  26. FLUITRAN [Concomitant]
     Indication: CARDIAC FAILURE
     Dosage: 1 MG MILLIGRAM(S), QD
     Route: 048
     Dates: start: 20130213, end: 20130220

REACTIONS (1)
  - Cerebral infarction [Recovered/Resolved]
